FAERS Safety Report 7882077-4 (Version None)
Quarter: 2011Q4

REPORT INFORMATION
  Report Type: 
  Country: None (occurrence: None)
  Receive Date: 20111101
  Receipt Date: 20110608
  Transmission Date: 20120403
  Serious: No
  Sender: FDA-Public Use
  Company Number: US-AMGEN-USASP2011021025

PATIENT
  Age: 64 Year
  Sex: Female

DRUGS (1)
  1. ENBREL [Suspect]
     Indication: PSORIATIC ARTHROPATHY
     Dosage: 50 MG, QWK
     Dates: start: 20101203

REACTIONS (5)
  - BACTERIAL INFECTION [None]
  - NASOPHARYNGITIS [None]
  - BRONCHITIS VIRAL [None]
  - MUSCULAR WEAKNESS [None]
  - INFLUENZA [None]
